FAERS Safety Report 21199404 (Version 6)
Quarter: 2022Q4

REPORT INFORMATION
  Report Type: Other
  Country: DE (occurrence: None)
  Receive Date: 20220811
  Receipt Date: 20221102
  Transmission Date: 20230113
  Serious: Yes (Other)
  Sender: FDA-Public Use
  Company Number: DE-ROCHE-3153086

PATIENT
  Age: 51 Year
  Sex: Male
  Weight: 83 kg

DRUGS (66)
  1. EMICIZUMAB [Suspect]
     Active Substance: EMICIZUMAB
     Indication: Haemophilia A with anti factor VIII
     Dosage: MOST RECENT DOSE: 25/SEP/2022
     Route: 058
     Dates: start: 20201019
  2. EMICIZUMAB [Suspect]
     Active Substance: EMICIZUMAB
     Route: 058
     Dates: start: 20200921, end: 20201012
  3. DEXAMETHASONE [Concomitant]
     Active Substance: DEXAMETHASONE
     Indication: Lung adenocarcinoma
     Route: 048
     Dates: start: 20201211, end: 20210122
  4. DEXAMETHASONE [Concomitant]
     Active Substance: DEXAMETHASONE
     Indication: Subileus
     Route: 048
     Dates: start: 20210123, end: 20210203
  5. DEXAMETHASONE [Concomitant]
     Active Substance: DEXAMETHASONE
     Route: 048
     Dates: start: 20210210, end: 20210212
  6. DEXAMETHASONE [Concomitant]
     Active Substance: DEXAMETHASONE
     Route: 041
     Dates: start: 20220505, end: 20220615
  7. DEXAMETHASONE [Concomitant]
     Active Substance: DEXAMETHASONE
     Route: 048
     Dates: start: 20220506, end: 20220508
  8. DEXAMETHASONE [Concomitant]
     Active Substance: DEXAMETHASONE
     Route: 048
     Dates: start: 20220526, end: 20220528
  9. DEXAMETHASONE [Concomitant]
     Active Substance: DEXAMETHASONE
     Route: 048
     Dates: start: 20220616, end: 20220618
  10. DEXAMETHASONE [Concomitant]
     Active Substance: DEXAMETHASONE
     Route: 048
     Dates: start: 20220928
  11. DEXAMETHASONE [Concomitant]
     Active Substance: DEXAMETHASONE
     Route: 042
     Dates: start: 20220903, end: 20220903
  12. DEXAMETHASONE [Concomitant]
     Active Substance: DEXAMETHASONE
     Route: 048
     Dates: start: 20220526, end: 20220528
  13. DEXAMETHASONE [Concomitant]
     Active Substance: DEXAMETHASONE
     Route: 048
     Dates: start: 20220616, end: 20220618
  14. LEVETIRACETAM [Concomitant]
     Active Substance: LEVETIRACETAM
     Indication: Seizure
     Route: 048
     Dates: start: 20201211, end: 20211201
  15. LEVETIRACETAM [Concomitant]
     Active Substance: LEVETIRACETAM
     Route: 048
     Dates: start: 20211202
  16. FOLIC ACID [Concomitant]
     Active Substance: FOLIC ACID
     Indication: Lung adenocarcinoma
     Route: 048
     Dates: start: 20201211, end: 20211201
  17. METAMIZOLE [Concomitant]
     Active Substance: METAMIZOLE
     Indication: Headache
     Route: 048
     Dates: start: 20201211, end: 20220424
  18. METAMIZOLE [Concomitant]
     Active Substance: METAMIZOLE
     Indication: Lymphadenopathy
     Route: 048
     Dates: start: 20220425, end: 20220807
  19. METAMIZOLE [Concomitant]
     Active Substance: METAMIZOLE
     Indication: Lung adenocarcinoma
  20. GRANISETRON [Concomitant]
     Active Substance: GRANISETRON
     Indication: Lung adenocarcinoma
     Route: 042
     Dates: start: 20201230, end: 20211027
  21. GRANISETRON [Concomitant]
     Active Substance: GRANISETRON
     Route: 041
     Dates: start: 20220505, end: 20220615
  22. MAGNESIUM [Concomitant]
     Active Substance: MAGNESIUM
     Indication: Lung adenocarcinoma
     Route: 048
     Dates: start: 20210303, end: 20220425
  23. PREDNISOLONE [Concomitant]
     Active Substance: PREDNISOLONE
     Indication: Immune-mediated nephritis
  24. CALCIVIT D [Concomitant]
     Indication: Prophylaxis
     Route: 048
     Dates: start: 20211202, end: 20220425
  25. METOCLOPRAMIDE [Concomitant]
     Active Substance: METOCLOPRAMIDE
     Indication: Lymphadenopathy
     Route: 048
     Dates: start: 20220425, end: 20220807
  26. METOCLOPRAMIDE [Concomitant]
     Active Substance: METOCLOPRAMIDE
     Indication: Lung adenocarcinoma
     Route: 048
     Dates: start: 20220912, end: 20220917
  27. METOCLOPRAMIDE [Concomitant]
     Active Substance: METOCLOPRAMIDE
     Route: 048
     Dates: start: 20220927
  28. OXYCODONE [Concomitant]
     Active Substance: OXYCODONE
     Indication: Lymphadenopathy
     Route: 048
     Dates: start: 20220425, end: 20220807
  29. OXYCODONE [Concomitant]
     Active Substance: OXYCODONE
     Indication: Lung adenocarcinoma
     Route: 048
     Dates: start: 20220425
  30. RAMUCIRUMAB [Concomitant]
     Active Substance: RAMUCIRUMAB
     Indication: Lung adenocarcinoma
     Route: 041
     Dates: start: 20220505, end: 20220615
  31. CLEMASTINE [Concomitant]
     Active Substance: CLEMASTINE
     Indication: Lung adenocarcinoma
     Route: 041
     Dates: start: 20220505, end: 20220615
  32. DOCETAXEL [Concomitant]
     Active Substance: DOCETAXEL
     Indication: Lung adenocarcinoma
     Route: 041
     Dates: start: 20220505, end: 20220615
  33. FILGRASTIM [Concomitant]
     Active Substance: FILGRASTIM
     Indication: Lung adenocarcinoma
     Route: 058
     Dates: start: 20220512, end: 20220519
  34. METAMIZOLE [Concomitant]
     Active Substance: METAMIZOLE
     Indication: Ascites
     Route: 048
     Dates: start: 20220806, end: 20220807
  35. METAMIZOLE [Concomitant]
     Active Substance: METAMIZOLE
     Indication: Lung adenocarcinoma
     Route: 048
     Dates: start: 20220808, end: 20220901
  36. METAMIZOLE [Concomitant]
     Active Substance: METAMIZOLE
     Route: 040
     Dates: start: 20220831, end: 20220831
  37. METAMIZOLE [Concomitant]
     Active Substance: METAMIZOLE
     Route: 048
     Dates: start: 20220921, end: 20220929
  38. METRONIDAZOLE [Concomitant]
     Active Substance: METRONIDAZOLE
     Indication: Ascites
     Route: 048
     Dates: start: 20220807, end: 20220810
  39. HYDROMORPHONE [Concomitant]
     Active Substance: HYDROMORPHONE
     Indication: Lung adenocarcinoma
     Route: 048
     Dates: start: 20220811, end: 20220926
  40. SPIRONOLACTONE [Concomitant]
     Active Substance: SPIRONOLACTONE
     Indication: Ascites
     Route: 048
     Dates: start: 20220811, end: 20220826
  41. TORSEMIDE [Concomitant]
     Active Substance: TORSEMIDE
     Indication: Ascites
     Route: 048
     Dates: start: 20220811, end: 20220826
  42. PIPERACILLIN SODIUM\TAZOBACTAM SODIUM [Concomitant]
     Active Substance: PIPERACILLIN SODIUM\TAZOBACTAM SODIUM
     Indication: Acute kidney injury
     Route: 041
     Dates: start: 20220826, end: 20220901
  43. MOVICOL [Concomitant]
     Active Substance: POLYETHYLENE GLYCOL 3350\POTASSIUM CHLORIDE\SODIUM BICARBONATE\SODIUM CHLORIDE
     Indication: Prophylaxis
     Route: 048
     Dates: start: 20220809, end: 20220917
  44. NALDEMEDINE [Concomitant]
     Active Substance: NALDEMEDINE
     Indication: Lung adenocarcinoma
     Route: 048
     Dates: start: 20220829
  45. DOMPERIDONE [Concomitant]
     Active Substance: DOMPERIDONE
     Indication: Prophylaxis
     Route: 048
     Dates: start: 20220829
  46. CHOLECALCIFEROL [Concomitant]
     Active Substance: CHOLECALCIFEROL
     Indication: Prophylaxis
     Route: 048
     Dates: start: 20220829
  47. LEVOTHYROXINE SODIUM [Concomitant]
     Active Substance: LEVOTHYROXINE SODIUM
     Indication: Prophylaxis
     Route: 048
     Dates: start: 20220830
  48. LEVOTHYROXINE SODIUM [Concomitant]
     Active Substance: LEVOTHYROXINE SODIUM
     Indication: Hypothyroidism
  49. ZOPICLONE [Concomitant]
     Active Substance: ZOPICLONE
     Indication: Lung adenocarcinoma
     Route: 048
     Dates: start: 20220903, end: 20220904
  50. ZOPICLONE [Concomitant]
     Active Substance: ZOPICLONE
     Route: 048
     Dates: start: 20220905
  51. EPOETIN ALFA [Concomitant]
     Active Substance: ERYTHROPOIETIN
     Indication: Acute kidney injury
     Route: 058
     Dates: start: 20220903, end: 20220929
  52. CEFTRIAXONE [Concomitant]
     Active Substance: CEFTRIAXONE
     Indication: Peritonitis bacterial
     Route: 041
     Dates: start: 20220904, end: 20220907
  53. AMPICILLIN [Concomitant]
     Active Substance: AMPICILLIN
     Indication: Peritonitis bacterial
     Route: 041
     Dates: start: 20220906
  54. ONDANSETRON [Concomitant]
     Active Substance: ONDANSETRON
     Indication: Peritonitis bacterial
     Route: 040
     Dates: start: 20220909
  55. FENTANYL [Concomitant]
     Active Substance: FENTANYL
     Indication: Lung adenocarcinoma
     Route: 062
     Dates: start: 20220911, end: 20220913
  56. FENTANYL [Concomitant]
     Active Substance: FENTANYL
     Route: 062
     Dates: start: 20220914, end: 20220918
  57. FENTANYL [Concomitant]
     Active Substance: FENTANYL
     Route: 062
     Dates: start: 20220919, end: 20220929
  58. FENTANYL [Concomitant]
     Active Substance: FENTANYL
     Route: 060
     Dates: start: 20220914, end: 20220928
  59. OLANZAPINE [Concomitant]
     Active Substance: OLANZAPINE
     Indication: Lung adenocarcinoma
     Route: 048
     Dates: start: 20220911, end: 20220915
  60. DIMENHYDRINATE [Concomitant]
     Active Substance: DIMENHYDRINATE
     Indication: Lung adenocarcinoma
     Route: 042
     Dates: start: 20220912, end: 20220921
  61. DIMENHYDRINATE [Concomitant]
     Active Substance: DIMENHYDRINATE
     Route: 048
     Dates: start: 20220921
  62. GEMCITABINE [Concomitant]
     Active Substance: GEMCITABINE
     Indication: Lung adenocarcinoma
     Route: 041
     Dates: start: 20220903, end: 20220903
  63. BISACODYL [Concomitant]
     Active Substance: BISACODYL
     Indication: Subileus
     Route: 048
     Dates: start: 20220928
  64. AMPHOTERICIN B [Concomitant]
     Active Substance: AMPHOTERICIN B
     Indication: Prophylaxis
     Route: 002
     Dates: start: 20220928, end: 20220929
  65. TAVOR (LORAZEPAM) [Concomitant]
     Active Substance: LORAZEPAM
     Indication: Anxiety
     Route: 048
     Dates: start: 20220928, end: 20220930
  66. APIXABAN [Concomitant]
     Active Substance: APIXABAN
     Indication: Brachiocephalic vein thrombosis
     Route: 048
     Dates: start: 20220808, end: 20220824

REACTIONS (1)
  - Brachiocephalic vein thrombosis [Unknown]

NARRATIVE: CASE EVENT DATE: 20220705
